FAERS Safety Report 4293062-6 (Version None)
Quarter: 2004Q1

REPORT INFORMATION
  Report Type: 
  Country: None (occurrence: None)
  Receive Date: 20040210
  Receipt Date: 20040126
  Transmission Date: 20041129
  Serious: Yes (Hospitalization)
  Sender: FDA-Public Use
  Company Number: S04-FRA-00069-01

PATIENT
  Age: 82 Year
  Sex: Female

DRUGS (11)
  1. SEROPRAM (CITALOPRAM HYDROBROMIDE) [Suspect]
     Dosage: 20 MG QD PO
     Route: 048
  2. DIAMICRON (GLICLAZIDE) [Suspect]
     Dosage: 80 MG TIW PO
     Route: 048
     Dates: end: 20030624
  3. CATAPRES [Suspect]
     Dosage: 0.075 MG QD PO
     Route: 048
     Dates: end: 20030625
  4. CORDARONE [Suspect]
     Dosage: 200 MG QD PO
     Route: 048
     Dates: end: 20030626
  5. GLUCOR (ACARBOSE) [Suspect]
     Dosage: 50 MG TIW PO
     Route: 048
     Dates: end: 20030624
  6. SPIRONOLACTONE [Concomitant]
  7. OMEPRAZOLE [Concomitant]
  8. TANAKAN (GINKGO BILOBA EXTRACT) [Concomitant]
  9. PENTOXIFYLLINE [Concomitant]
  10. INSULIN [Concomitant]
  11. .. [Concomitant]

REACTIONS (10)
  - CHOLELITHIASIS [None]
  - CHOLESTASIS [None]
  - CONFUSIONAL STATE [None]
  - CREATININE RENAL CLEARANCE DECREASED [None]
  - CYTOLYTIC HEPATITIS [None]
  - DIABETES MELLITUS INADEQUATE CONTROL [None]
  - HEPATIC FUNCTION ABNORMAL [None]
  - LUNG CREPITATION [None]
  - PANCREATIC NEOPLASM [None]
  - SINUS BRADYCARDIA [None]
